FAERS Safety Report 8463441-1 (Version None)
Quarter: 2012Q2

REPORT INFORMATION
  Report Type: 
  Country: None (occurrence: None)
  Receive Date: 20120323
  Receipt Date: 20110921
  Transmission Date: 20120825
  Serious: Yes (Hospitalization)
  Sender: FDA-Public Use
  Company Number: 163-21880-11092758

PATIENT
  Age: 82 Year
  Sex: Female
  Weight: 68.0396 kg

DRUGS (9)
  1. ASPIRIN [Concomitant]
  2. ATACAND (CANDESARTA CILEXETIL) [Concomitant]
  3. DEXAMETHASONE [Concomitant]
  4. VITAMIN D [Concomitant]
  5. REVLIMID [Suspect]
     Indication: AMYLOIDOSIS
     Dosage: 15 MG, 1 IN 1 D, PO; 10 MG, 1 IN 1 D, PO; 5 MG, DAILY FOR 21 DAYS, PO
     Route: 048
     Dates: start: 20090601
  6. REVLIMID [Suspect]
     Indication: AMYLOIDOSIS
     Dosage: 15 MG, 1 IN 1 D, PO; 10 MG, 1 IN 1 D, PO; 5 MG, DAILY FOR 21 DAYS, PO
     Route: 048
     Dates: start: 20100401
  7. REVLIMID [Suspect]
     Indication: AMYLOIDOSIS
     Dosage: 15 MG, 1 IN 1 D, PO; 10 MG, 1 IN 1 D, PO; 5 MG, DAILY FOR 21 DAYS, PO
     Route: 048
     Dates: start: 20080731
  8. SYNTHROID [Concomitant]
  9. MULTIVITAMIN [Concomitant]

REACTIONS (2)
  - GOUT [None]
  - CONDITION AGGRAVATED [None]
